FAERS Safety Report 4731790-6 (Version None)
Quarter: 2005Q3

REPORT INFORMATION
  Report Type: 
  Country: None (occurrence: None)
  Receive Date: 20050802
  Receipt Date: 20050225
  Transmission Date: 20060218
  Serious: Yes (Hospitalization)
  Sender: FDA-Public Use
  Company Number: IT-BRISTOL-MYERS SQUIBB COMPANY-12878286

PATIENT
  Age: 84 Year
  Sex: Male

DRUGS (1)
  1. TAXOL [Suspect]
     Indication: PROSTATE CANCER
     Dosage: INITIAL DOSE: 03-NOV-2004
     Route: 042
     Dates: start: 20050210, end: 20050210

REACTIONS (3)
  - ATRIAL FIBRILLATION [None]
  - CARDIAC FAILURE [None]
  - PULMONARY OEDEMA [None]
